FAERS Safety Report 8305445-5 (Version None)
Quarter: 2012Q2

REPORT INFORMATION
  Report Type: 
  Country: None (occurrence: None)
  Receive Date: 20120423
  Receipt Date: 20120412
  Transmission Date: 20120825
  Serious: Yes (Hospitalization, Other)
  Sender: FDA-Public Use
  Company Number: JP-CELGENEUS-087-50794-11081860

PATIENT
  Sex: Male
  Weight: 55 kg

DRUGS (21)
  1. ALOXI [Concomitant]
     Route: 065
     Dates: start: 20110328, end: 20110328
  2. DECADRON [Concomitant]
     Route: 065
     Dates: start: 20110329, end: 20110330
  3. DECADRON [Concomitant]
     Route: 065
     Dates: start: 20110331, end: 20110401
  4. GRANISETRON [Concomitant]
     Route: 065
     Dates: start: 20110530, end: 20110607
  5. ARGATROBAN [Concomitant]
     Route: 065
     Dates: start: 20110811, end: 20110811
  6. RADICUT [Concomitant]
     Route: 065
     Dates: start: 20110811, end: 20110811
  7. RADICUT [Concomitant]
     Route: 065
     Dates: start: 20110812, end: 20110824
  8. VIDAZA [Suspect]
     Dosage: 75 MILLIGRAM/SQ. METER
     Route: 041
     Dates: start: 20110627, end: 20110705
  9. GRANISETRON [Concomitant]
     Route: 065
     Dates: start: 20110627, end: 20110705
  10. VIDAZA [Suspect]
     Dosage: 75 MILLIGRAM/SQ. METER
     Route: 041
     Dates: start: 20110328, end: 20110403
  11. VIDAZA [Suspect]
     Dosage: 75 MILLIGRAM/SQ. METER
     Route: 041
     Dates: start: 20110530, end: 20110607
  12. DECADRON [Concomitant]
     Route: 065
     Dates: start: 20110402, end: 20110403
  13. LANSOPRAZOLE [Concomitant]
     Route: 065
     Dates: start: 20110811
  14. VIDAZA [Suspect]
     Dosage: 75 MILLIGRAM/SQ. METER
     Route: 041
     Dates: start: 20110425, end: 20110501
  15. DEXAMETHASONE SODIUM PHOSPHATE [Concomitant]
     Route: 065
     Dates: start: 20110328, end: 20110328
  16. GRANISETRON [Concomitant]
     Route: 065
     Dates: start: 20110801, end: 20110809
  17. PLETAL [Concomitant]
     Route: 065
     Dates: start: 20110811
  18. VIDAZA [Suspect]
     Dosage: 75 MILLIGRAM/SQ. METER
     Route: 041
     Dates: start: 20110801, end: 20110809
  19. DECADRON [Concomitant]
     Route: 065
     Dates: start: 20110404, end: 20110405
  20. ARGATROBAN [Concomitant]
     Route: 065
     Dates: start: 20110812, end: 20110812
  21. ARGATROBAN [Concomitant]
     Route: 065
     Dates: start: 20110813, end: 20110818

REACTIONS (5)
  - WHITE BLOOD CELL COUNT DECREASED [None]
  - HAEMOGLOBIN DECREASED [None]
  - CEREBRAL INFARCTION [None]
  - RED BLOOD CELL COUNT DECREASED [None]
  - PLATELET COUNT DECREASED [None]
